FAERS Safety Report 9987930 (Version 1)
Quarter: 2014Q1

REPORT INFORMATION
  Report Type: Spontaneous
  Country: FR (occurrence: FR)
  Receive Date: 20140307
  Receipt Date: 20140307
  Transmission Date: 20141002
  Serious: Yes (Hospitalization, Other)
  Sender: FDA-Public Use
  Company Number: FR-PFIZER INC-2014065748

PATIENT
  Age: 76 Year
  Sex: Male

DRUGS (11)
  1. TRIATEC [Suspect]
     Indication: HYPERTENSION
     Dosage: 1 DF, DAILY
     Route: 048
     Dates: start: 20140207
  2. EUCREAS [Interacting]
     Indication: TYPE 2 DIABETES MELLITUS
     Dosage: 2 DF, DAILY
     Route: 048
  3. LANTUS [Concomitant]
     Dosage: UNK
  4. NIFUROXAZIDE [Concomitant]
     Dosage: UNK
  5. CARBOSYMAG [Concomitant]
     Dosage: UNK
  6. DEROXAT [Concomitant]
     Dosage: UNK
  7. TAHOR [Concomitant]
     Dosage: UNK
  8. KARDEGIC [Concomitant]
     Dosage: UNK
  9. CARDENSIEL [Concomitant]
     Dosage: UNK
  10. LASILIX [Concomitant]
     Dosage: UNK
  11. DAFALGAN [Concomitant]
     Dosage: UNK

REACTIONS (3)
  - Drug interaction [Recovered/Resolved]
  - Angioedema [Recovered/Resolved]
  - Macroglossia [Recovered/Resolved]
